FAERS Safety Report 6424966-3 (Version None)
Quarter: 2009Q4

REPORT INFORMATION
  Report Type: 
  Country: None (occurrence: None)
  Receive Date: 20091103
  Receipt Date: 20091027
  Transmission Date: 20100525
  Serious: Yes (Hospitalization)
  Sender: FDA-Public Use
  Company Number: US-ELI_LILLY_AND_COMPANY-US200910006649

PATIENT
  Sex: Female

DRUGS (15)
  1. HUMULIN N [Suspect]
  2. HUMULIN R [Suspect]
  3. CYMBALTA [Suspect]
     Indication: DEPRESSION
     Dosage: 60 MG, DAILY (1/D)
     Dates: start: 20080301
  4. PLAVIX [Concomitant]
  5. COUMADIN [Concomitant]
  6. ZETIA [Concomitant]
  7. FOSAMAX [Concomitant]
  8. SINGULAIR [Concomitant]
  9. LEXAPRO [Concomitant]
  10. CARAFATE [Concomitant]
  11. LANTUS [Concomitant]
  12. ADVAIR DISKUS 100/50 [Concomitant]
  13. VENTILAN [Concomitant]
  14. SPIRIVA [Concomitant]
  15. ACIPHEX [Concomitant]

REACTIONS (2)
  - CEREBROVASCULAR ACCIDENT [None]
  - MYOCARDIAL INFARCTION [None]
